FAERS Safety Report 6388826-9 (Version None)
Quarter: 2009Q4

REPORT INFORMATION
  Report Type: 
  Country: None (occurrence: None)
  Receive Date: 20091001
  Receipt Date: 20090825
  Transmission Date: 20100525
  Serious: Yes (Other)
  Sender: FDA-Public Use
  Company Number: 2009CD0216

PATIENT
  Age: 67 Year
  Sex: Male

DRUGS (1)
  1. KEIMAX (CEFTIBUTEN) [Suspect]
     Indication: PHARYNGEAL INFLAMMATION
     Dosage: 400 MG

REACTIONS (4)
  - LIVER DISORDER [None]
  - SWELLING [None]
  - UNEVALUABLE EVENT [None]
  - WEIGHT DECREASED [None]
